FAERS Safety Report 8141826-0 (Version None)
Quarter: 2012Q1

REPORT INFORMATION
  Report Type: 
  Country: None (occurrence: None)
  Receive Date: 20120216
  Receipt Date: 20120207
  Transmission Date: 20120608
  Serious: Yes (Life-Threatening, Hospitalization, Other)
  Sender: FDA-Public Use
  Company Number: US-ELI_LILLY_AND_COMPANY-US201112005824

PATIENT
  Sex: Male

DRUGS (12)
  1. MULTI-VITAMIN [Concomitant]
  2. ATENOLOL [Concomitant]
  3. LEVOTHYROXINE SODIUM [Concomitant]
  4. SALT [Concomitant]
  5. FORTEO [Suspect]
     Indication: OSTEOPOROSIS
     Dosage: 20 UG, QD
     Route: 058
  6. FORTEO [Suspect]
     Dosage: 20 UG, QD
     Route: 058
  7. POLYETHYLENE GLYCOL [Concomitant]
  8. ERYTHROMYCIN [Concomitant]
  9. VITAMIN D [Concomitant]
  10. TRAVATAN Z [Concomitant]
  11. CALCIUM CARBONATE [Concomitant]
  12. TETRYZOLINE HYDROCHLORIDE [Concomitant]

REACTIONS (10)
  - MUSCULOSKELETAL STIFFNESS [None]
  - INFLAMMATION [None]
  - NASOPHARYNGITIS [None]
  - PLEURAL EFFUSION [None]
  - TRACHEOSTOMY [None]
  - ASPIRATION [None]
  - TOOTH EXTRACTION [None]
  - MECHANICAL VENTILATION [None]
  - EMPYEMA [None]
  - PNEUMONIA [None]
